FAERS Safety Report 9261257 (Version 1)
Quarter: 2013Q2

REPORT INFORMATION
  Report Type: Spontaneous
  Country: CN (occurrence: CN)
  Receive Date: 20130429
  Receipt Date: 20130429
  Transmission Date: 20140414
  Serious: Yes (Death, Life-Threatening)
  Sender: FDA-Public Use
  Company Number: CN-JNJFOC-20130410816

PATIENT
  Sex: 0

DRUGS (9)
  1. ITRACONAZOLE [Suspect]
     Indication: ANTIFUNGAL PROPHYLAXIS
     Route: 042
  2. CYCLOSPORINE A [Interacting]
     Indication: TRANSPLANT
     Route: 042
  3. CYCLOSPORINE A [Interacting]
     Indication: TRANSPLANT
     Route: 042
  4. CYCLOSPORINE A [Interacting]
     Indication: TRANSPLANT
     Route: 042
  5. CYCLOSPORINE A [Interacting]
     Indication: TRANSPLANT
     Route: 042
  6. CYCLOSPORINE A [Interacting]
     Indication: TRANSPLANT
     Route: 042
  7. VORICONAZOLE [Interacting]
     Indication: ANTIFUNGAL PROPHYLAXIS
     Route: 042
  8. VORICONAZOLE [Interacting]
     Indication: ANTIFUNGAL PROPHYLAXIS
     Route: 042
  9. VORICONAZOLE [Interacting]
     Indication: ANTIFUNGAL PROPHYLAXIS
     Route: 048

REACTIONS (2)
  - Neurotoxicity [Fatal]
  - Drug interaction [Unknown]
